FAERS Safety Report 24310799 (Version 1)
Quarter: 2024Q3

REPORT INFORMATION
  Report Type: Spontaneous
  Country: DE (occurrence: None)
  Receive Date: 20240912
  Receipt Date: 20240912
  Transmission Date: 20241017
  Serious: Yes (Hospitalization, Other)
  Sender: ASTRAZENECA
  Company Number: 2024A201036

PATIENT
  Age: 80 Year
  Sex: Female
  Weight: 70 kg

DRUGS (1)
  1. DAPAGLIFLOZIN [Suspect]
     Active Substance: DAPAGLIFLOZIN
     Indication: Type 2 diabetes mellitus
     Dosage: 5 MG 1-0-1
     Route: 048
     Dates: end: 20240825

REACTIONS (5)
  - Metabolic acidosis [Recovering/Resolving]
  - Blood glucose increased [Recovering/Resolving]
  - Urine ketone body present [Recovering/Resolving]
  - Cardiovascular disorder [Recovering/Resolving]
  - Ketoacidosis [Recovering/Resolving]

NARRATIVE: CASE EVENT DATE: 20240825
